FAERS Safety Report 14165262 (Version 1)
Quarter: 2017Q4

REPORT INFORMATION
  Report Type: Spontaneous
  Country: US (occurrence: US)
  Receive Date: 20171106
  Receipt Date: 20171106
  Transmission Date: 20180321
  Serious: Yes (Other)
  Sender: FDA-Public Use
  Company Number: None

PATIENT
  Sex: Female
  Weight: 49.5 kg

DRUGS (5)
  1. PRENATAL VITAMINS [Concomitant]
     Active Substance: VITAMINS
  2. SHAROBEL [Concomitant]
     Active Substance: NORETHINDRONE
  3. LUPRON DEPOT [Suspect]
     Active Substance: LEUPROLIDE ACETATE
     Indication: ENDOMETRIOSIS
     Dosage: ?          OTHER FREQUENCY:ONCE A MONTH;?
     Route: 030
     Dates: start: 20170421, end: 20171026
  4. LEVOTHYROXINE. [Concomitant]
     Active Substance: LEVOTHYROXINE
  5. HYPOTHYROID [Concomitant]

REACTIONS (9)
  - Depression [None]
  - Headache [None]
  - Loss of libido [None]
  - Mood altered [None]
  - Gingival pain [None]
  - Alopecia [None]
  - Aggression [None]
  - Bone pain [None]
  - Alcohol interaction [None]

NARRATIVE: CASE EVENT DATE: 20170630
